FAERS Safety Report 6144851-4 (Version None)
Quarter: 2009Q2

REPORT INFORMATION
  Report Type: 
  Country: None (occurrence: None)
  Receive Date: 20090406
  Receipt Date: 20090402
  Transmission Date: 20091009
  Serious: Yes (Other)
  Sender: FDA-Public Use
  Company Number: CA-ROXANE LABORATORIES, INC.-2009-RO-00330RO

PATIENT
  Age: 54 Year
  Sex: Male

DRUGS (2)
  1. MYCOPHENOLATE MOFETIL [Suspect]
     Indication: SYSTEMIC SCLEROSIS
     Dosage: 1000MG
     Dates: start: 20031001
  2. RAMIPRIL [Suspect]
     Indication: SYSTEMIC SCLEROSIS

REACTIONS (1)
  - SQUAMOUS CELL CARCINOMA [None]
